FAERS Safety Report 6371826-2 (Version None)
Quarter: 2009Q3

REPORT INFORMATION
  Report Type: 
  Country: None (occurrence: None)
  Receive Date: 20090923
  Receipt Date: 20090909
  Transmission Date: 20100115
  Serious: No
  Sender: FDA-Public Use
  Company Number: IE-WYE-G04402009

PATIENT
  Age: 38 Year
  Sex: Female

DRUGS (1)
  1. RELISTOR [Suspect]
     Indication: DRUG USE FOR UNKNOWN INDICATION
     Dosage: UNKNOWN

REACTIONS (2)
  - ANGINA PECTORIS [None]
  - CHEST PAIN [None]
